FAERS Safety Report 19643454 (Version 1)
Quarter: 2021Q3

REPORT INFORMATION
  Report Type: Spontaneous
  Country: CN (occurrence: CN)
  Receive Date: 20210730
  Receipt Date: 20210730
  Transmission Date: 20211014
  Serious: Yes (Other)
  Sender: FDA-Public Use
  Company Number: CN-ASTRAZENECA-2021A643747

PATIENT
  Age: 23376 Day
  Sex: Female
  Weight: 63 kg

DRUGS (1)
  1. DAPAGLIFLOZIN. [Suspect]
     Active Substance: DAPAGLIFLOZIN
     Indication: BLOOD GLUCOSE ABNORMAL
     Route: 048
     Dates: start: 20210716, end: 20210720

REACTIONS (2)
  - Pruritus [Recovering/Resolving]
  - Perineal pain [Recovering/Resolving]

NARRATIVE: CASE EVENT DATE: 20210718
